FAERS Safety Report 9193909 (Version 4)
Quarter: 2014Q1

REPORT INFORMATION
  Report Type: Spontaneous
  Country: US (occurrence: None)
  Receive Date: 20130325
  Receipt Date: 20140207
  Transmission Date: 20141002
  Serious: Yes (Death, Hospitalization)
  Sender: FDA-Public Use
  Company Number: 2013SGN00142

PATIENT
  Age: 77 Year
  Sex: Male
  Weight: 90.9 kg

DRUGS (1)
  1. BRENTUXIMAB VEDOTIN (BRENTUXIMAB VEDOTIN) INJECTION [Suspect]
     Indication: DIFFUSE LARGE B-CELL LYMPHOMA
     Route: 042
     Dates: start: 20130129, end: 20130219

REACTIONS (8)
  - Thrombocytopenia [None]
  - Dehydration [None]
  - Neutropenia [None]
  - Confusional state [None]
  - Diffuse large B-cell lymphoma [None]
  - Malignant neoplasm progression [None]
  - Disease progression [None]
  - Leukopenia [None]
